FAERS Safety Report 12041572 (Version 3)
Quarter: 2016Q2

REPORT INFORMATION
  Report Type: Spontaneous
  Country: US (occurrence: US)
  Receive Date: 20160208
  Receipt Date: 20160527
  Transmission Date: 20160815
  Serious: Yes (Other)
  Sender: FDA-Public Use
  Company Number: US-009507513-1602USA004188

PATIENT
  Age: 55 Year
  Sex: Male
  Weight: 101.13 kg

DRUGS (1)
  1. JANUVIA [Suspect]
     Active Substance: SITAGLIPTIN PHOSPHATE
     Indication: TYPE 2 DIABETES MELLITUS
     Dosage: 100 MG, QD
     Route: 048
     Dates: start: 20100724, end: 20160205

REACTIONS (7)
  - Arteriosclerosis coronary artery [Unknown]
  - Transferrin saturation decreased [Unknown]
  - Spinal osteoarthritis [Unknown]
  - Abdominal pain [Recovered/Resolved]
  - Lipase increased [Unknown]
  - Hepatic steatosis [Unknown]
  - Blood glucose increased [Unknown]

NARRATIVE: CASE EVENT DATE: 2014
